FAERS Safety Report 8363688-9 (Version None)
Quarter: 2012Q1

REPORT INFORMATION
  Report Type: 
  Country: None (occurrence: None)
  Receive Date: 20120323
  Receipt Date: 20110714
  Transmission Date: 20120608
  Serious: Yes (Other)
  Sender: FDA-Public Use
  Company Number: 163-21880-11041570

PATIENT
  Age: 85 Year
  Sex: Male

DRUGS (6)
  1. GLUCOSAMINE [Concomitant]
  2. VITAMIN D [Concomitant]
  3. REVLIMID [Suspect]
     Indication: MULTIPLE MYELOMA
     Dosage: 25 MG DAILY X 21 DAYS, PO; 15 MG, DAILY X 21 DAYS, PO
     Route: 048
     Dates: start: 20101101
  4. REVLIMID [Suspect]
     Indication: MULTIPLE MYELOMA
     Dosage: 25 MG DAILY X 21 DAYS, PO; 15 MG, DAILY X 21 DAYS, PO
     Route: 048
     Dates: start: 20101201, end: 20110401
  5. MULTI-VITAMINS [Concomitant]
  6. FISH OIL [Concomitant]

REACTIONS (3)
  - ASTHENIA [None]
  - ANAEMIA [None]
  - WHITE BLOOD CELL COUNT DECREASED [None]
